FAERS Safety Report 23492663 (Version 1)
Quarter: 2024Q1

REPORT INFORMATION
  Report Type: Spontaneous
  Country: PT (occurrence: PT)
  Receive Date: 20240207
  Receipt Date: 20240207
  Transmission Date: 20240409
  Serious: Yes (Other)
  Sender: FDA-Public Use
  Company Number: PT-ELI_LILLY_AND_COMPANY-PT202401012898

PATIENT
  Age: 63 Year
  Sex: Male

DRUGS (10)
  1. OLANZAPINE [Suspect]
     Active Substance: OLANZAPINE
     Indication: Huntington^s disease
     Dosage: 10 MG, DAILY?DAILY DOSE: 10 MILLIGRAM
  2. QUETIAPINE [Suspect]
     Active Substance: QUETIAPINE
     Indication: Huntington^s disease
     Dosage: EXTENDED-RELEASE QUETIAPINE
  3. QUETIAPINE [Suspect]
     Active Substance: QUETIAPINE
     Indication: Huntington^s disease
     Dosage: EXTENDED-RELEASE QUETIAPINE.  SLOWLY TITRATED UNTIL A MAXIMUM OF 300 MG
  4. HALOPERIDOL [Suspect]
     Active Substance: HALOPERIDOL
     Indication: Huntington^s disease
     Dosage: 5 MG, DAILY?DAILY DOSE: 5 MILLIGRAM
  5. LORAZEPAM [Suspect]
     Active Substance: LORAZEPAM
     Indication: Huntington^s disease
     Dosage: 2.5 MG, DAILY?DAILY DOSE: 2.5 MILLIGRAM
  6. TRIHEXYPHENIDYL [Suspect]
     Active Substance: TRIHEXYPHENIDYL
     Indication: Huntington^s disease
  7. TRIHEXYPHENIDYL [Suspect]
     Active Substance: TRIHEXYPHENIDYL
     Indication: Huntington^s disease
     Dosage: FREQ: BID?DAILY DOSE: 4 MILLIGRAM
  8. RISPERIDONE [Concomitant]
     Active Substance: RISPERIDONE
     Indication: Huntington^s disease
     Dosage: 3MG/DAY?DAILY DOSE: 3 MILLIGRAM
  9. RISPERIDONE [Concomitant]
     Active Substance: RISPERIDONE
     Indication: Huntington^s disease
     Dosage: INCREASING DAILY DOSES UNTIL A MAXIMUM OF 6 MG/DAY?DAILY DOSE: 6 MILLIGRAM
  10. MEMANTINE [Concomitant]
     Active Substance: MEMANTINE
     Indication: Huntington^s disease
     Dosage: 20MG ID

REACTIONS (3)
  - Extrapyramidal disorder [Unknown]
  - Drug ineffective [Unknown]
  - Off label use [Recovered/Resolved]
